FAERS Safety Report 23921720 (Version 1)
Quarter: 2024Q2

REPORT INFORMATION
  Report Type: Spontaneous
  Country: DE (occurrence: DE)
  Receive Date: 20240530
  Receipt Date: 20240530
  Transmission Date: 20240715
  Serious: Yes (Other)
  Sender: FDA-Public Use
  Company Number: DE-LUNDBECK-DKLU3078536

PATIENT
  Age: 37 Year
  Sex: Female

DRUGS (1)
  1. VYEPTI [Suspect]
     Active Substance: EPTINEZUMAB-JJMR
     Indication: Migraine
     Route: 041
     Dates: start: 20240523

REACTIONS (5)
  - Respiratory tract oedema [Recovered/Resolved]
  - Mouth swelling [Recovered/Resolved]
  - Swollen tongue [Recovered/Resolved]
  - Nasal oedema [Recovered/Resolved]
  - Eye swelling [Recovered/Resolved]

NARRATIVE: CASE EVENT DATE: 20240523
